FAERS Safety Report 24369091 (Version 1)
Quarter: 2024Q3

REPORT INFORMATION
  Report Type: Spontaneous
  Country: EG (occurrence: EG)
  Receive Date: 20240927
  Receipt Date: 20240927
  Transmission Date: 20241016
  Serious: Yes (Life-Threatening, Hospitalization, Other)
  Sender: NOVO NORDISK
  Company Number: EG-NOVOPROD-1286430

PATIENT
  Age: 507 Month
  Sex: Female
  Weight: 130 kg

DRUGS (2)
  1. VILDAGLIPTIN [Concomitant]
     Active Substance: VILDAGLIPTIN
     Indication: Type 1 diabetes mellitus
     Dosage: 1 TABLET/ QD
     Route: 048
  2. INSULIN HUMAN [Suspect]
     Active Substance: INSULIN HUMAN
     Indication: Type 1 diabetes mellitus
     Dosage: 55 IU, QD (35U MORNING AND 20U AT NIGHT)
     Route: 058
     Dates: start: 2017

REACTIONS (3)
  - Breast cancer [Unknown]
  - Hyperglycaemia [Not Recovered/Not Resolved]
  - Treatment noncompliance [Unknown]

NARRATIVE: CASE EVENT DATE: 20170101
